FAERS Safety Report 4952337-5 (Version None)
Quarter: 2006Q1

REPORT INFORMATION
  Report Type: 
  Country: None (occurrence: None)
  Receive Date: 20060131
  Receipt Date: 20050923
  Transmission Date: 20060701
  Serious: Yes (Hospitalization)
  Sender: FDA-Public Use
  Company Number: WAES 0509USA03636

PATIENT
  Age: 54 Year
  Sex: Female

DRUGS (21)
  1. INVANZ [Suspect]
     Indication: NOCARDIOSIS
     Dosage: 1 GM/DAILY/IV
     Route: 042
     Dates: start: 20050819, end: 20050907
  2. INVANZ [Suspect]
     Indication: PNEUMONIA
     Dosage: 1 GM/DAILY/IV
     Route: 042
     Dates: start: 20050819, end: 20050907
  3. INVANZ [Suspect]
     Indication: NOCARDIOSIS
     Dosage: 1 GM/DAILY/IV
     Route: 042
     Dates: start: 20050913, end: 20050920
  4. INVANZ [Suspect]
     Indication: PNEUMONIA
     Dosage: 1 GM/DAILY/IV
     Route: 042
     Dates: start: 20050913, end: 20050920
  5. CELEXA [Concomitant]
  6. NEURONTIN [Concomitant]
  7. PANCREASE (PANCRELIPASE) [Concomitant]
  8. PROTONIX [Concomitant]
  9. AMLODIPINE BESYLATE [Concomitant]
  10. CALCITRIOL [Concomitant]
  11. CLOTRIMAZOLE [Concomitant]
  12. CYCLOSPORINE [Concomitant]
  13. DARBEPOETIN ALFA [Concomitant]
  14. IMIPENEM [Concomitant]
  15. MEROPENEM [Concomitant]
  16. METOCLOPRAMIDE [Concomitant]
  17. METOPROLOL [Concomitant]
  18. OXYCODONE [Concomitant]
  19. PREDNISONE [Concomitant]
  20. URSODIOL [Concomitant]
  21. VANCOMYCIN [Concomitant]

REACTIONS (3)
  - MENTAL STATUS CHANGES [None]
  - PERIORBITAL OEDEMA [None]
  - RENAL FAILURE [None]
